FAERS Safety Report 4741329-7 (Version None)
Quarter: 2005Q3

REPORT INFORMATION
  Report Type: 
  Country: None (occurrence: None)
  Receive Date: 20050808
  Receipt Date: 20050725
  Transmission Date: 20060218
  Serious: Yes (Other)
  Sender: FDA-Public Use
  Company Number: 2005080850

PATIENT
  Age: 83 Year
  Sex: Female
  Weight: 72.1219 kg

DRUGS (4)
  1. TIKOSYN [Suspect]
     Indication: ATRIAL FIBRILLATION
     Dosage: 500 MCG (250 MCG 2 IN 1 D), ORAL
     Route: 048
     Dates: start: 20050301
  2. NITROSTAT [Suspect]
     Indication: ANGINA PECTORIS
  3. COUMADIN [Suspect]
     Indication: ILL-DEFINED DISORDER
     Dates: start: 20050301
  4. SECTRAL [Concomitant]

REACTIONS (12)
  - ANGINA PECTORIS [None]
  - COUGH [None]
  - DISCOMFORT [None]
  - DIZZINESS [None]
  - DYSPNOEA [None]
  - FEELING ABNORMAL [None]
  - FEELING COLD [None]
  - GAIT DISTURBANCE [None]
  - HEADACHE [None]
  - HYPOAESTHESIA [None]
  - PARAESTHESIA [None]
  - PHARMACEUTICAL PRODUCT COMPLAINT [None]
